FAERS Safety Report 14658740 (Version 1)
Quarter: 2018Q1

REPORT INFORMATION
  Report Type: Other
  Country: JP (occurrence: JP)
  Receive Date: 20180320
  Receipt Date: 20180320
  Transmission Date: 20180509
  Serious: Yes (Other)
  Sender: FDA-Public Use
  Company Number: JP-ACTELION-A-CH2018-168875

PATIENT
  Age: 4 Month
  Sex: Male

DRUGS (12)
  1. BOSENTAN. [Suspect]
     Active Substance: BOSENTAN
     Indication: PULMONARY ARTERIAL HYPERTENSION
     Route: 048
  2. NITRIC OXIDE. [Concomitant]
     Active Substance: NITRIC OXIDE
     Route: 055
  3. L-ASPARAGINASE [Concomitant]
     Active Substance: ASPARAGINASE
     Dosage: 5000 UNK, UNK
  4. MYCOPHENOLATE MOFETIL. [Concomitant]
     Active Substance: MYCOPHENOLATE MOFETIL
  5. BUSULFAN. [Concomitant]
     Active Substance: BUSULFAN
  6. L ASPARAGINASE [Suspect]
     Active Substance: ASPARAGINASE
     Indication: GRAFT VERSUS HOST DISEASE
     Route: 037
  7. EPOPROSTENOL SODIUM. [Suspect]
     Active Substance: EPOPROSTENOL SODIUM
     Indication: PULMONARY ARTERIAL HYPERTENSION
     Route: 042
  8. PREDNISOLONE. [Concomitant]
     Active Substance: PREDNISOLONE
     Dosage: 60 MG/KG, UNK
  9. ETOPOSIDE. [Concomitant]
     Active Substance: ETOPOSIDE
     Dosage: 60 UNK, UNK
  10. TADALAFIL [Concomitant]
     Active Substance: TADALAFIL
  11. FLUDARABINE [Concomitant]
     Active Substance: FLUDARABINE PHOSPHATE
     Dosage: 120 UNK, UNK
  12. MELPHALAN. [Concomitant]
     Active Substance: MELPHALAN
     Dosage: 180 MG/M2, UNK

REACTIONS (9)
  - Acute lymphocytic leukaemia recurrent [Unknown]
  - Anaphylactic reaction [Unknown]
  - Rash [Unknown]
  - Neutropenia [Unknown]
  - Leukaemic infiltration [Unknown]
  - Stem cell transplant [Unknown]
  - Thrombocytopenia [Unknown]
  - Constipation [Unknown]
  - Anaemia [Unknown]
